FAERS Safety Report 7908875-6 (Version None)
Quarter: 2011Q4

REPORT INFORMATION
  Report Type: 
  Country: None (occurrence: None)
  Receive Date: 20111111
  Receipt Date: 20111109
  Transmission Date: 20120403
  Serious: Yes (Other)
  Sender: FDA-Public Use
  Company Number: US-BAYER-2011-087145

PATIENT
  Age: 35 Year
  Sex: Female
  Weight: 55.601 kg

DRUGS (1)
  1. MIRENA [Suspect]
     Indication: CONTRACEPTION
     Dosage: UNK
     Dates: start: 20110815, end: 20110930

REACTIONS (4)
  - MEDICAL DEVICE COMPLICATION [None]
  - UTERINE PERFORATION [None]
  - PROCEDURAL PAIN [None]
  - PAIN [None]
